FAERS Safety Report 18765288 (Version 1)
Quarter: 2021Q1

REPORT INFORMATION
  Report Type: Spontaneous
  Country: IT (occurrence: IT)
  Receive Date: 20210121
  Receipt Date: 20210121
  Transmission Date: 20210419
  Serious: Yes (Other)
  Sender: FDA-Public Use
  Company Number: IT-SUN PHARMACEUTICAL INDUSTRIES LTD-2021RR-276828

PATIENT
  Age: 79 Year
  Sex: Male
  Weight: 80 kg

DRUGS (1)
  1. IMATINIB. [Suspect]
     Active Substance: IMATINIB MESYLATE
     Indication: LEUKAEMIA
     Dosage: 100 MILLIGRAM, DAILY
     Route: 048
     Dates: start: 20190510, end: 20200508

REACTIONS (3)
  - Blood creatinine increased [Not Recovered/Not Resolved]
  - Blood alkaline phosphatase increased [Not Recovered/Not Resolved]
  - Azotaemia [Not Recovered/Not Resolved]

NARRATIVE: CASE EVENT DATE: 20200408
